FAERS Safety Report 10009183 (Version 2)
Quarter: 2014Q1

REPORT INFORMATION
  Report Type: Spontaneous
  Country: US (occurrence: US)
  Receive Date: 20140313
  Receipt Date: 20140313
  Transmission Date: 20141002
  Serious: No
  Sender: FDA-Public Use
  Company Number: US-GILEAD-2013-0075077

PATIENT
  Age: 77 Year
  Sex: Female

DRUGS (6)
  1. LETAIRIS [Suspect]
     Indication: PULMONARY ARTERIAL HYPERTENSION
     Dosage: 10 MG, QD
     Dates: start: 20111223
  2. LETAIRIS [Suspect]
     Indication: PULMONARY EMBOLISM
  3. ADCIRCA [Concomitant]
     Indication: PULMONARY ARTERIAL HYPERTENSION
     Dosage: 40 MG, QD
  4. COUMADIN                           /00014802/ [Concomitant]
     Indication: THROMBOSIS
     Dosage: 1 DF, QD
  5. DIOVAN [Concomitant]
     Indication: BLOOD PRESSURE
  6. CALCIUM [Concomitant]
     Indication: SUPPLEMENTATION THERAPY
     Dosage: 1 DF, QD

REACTIONS (1)
  - Epistaxis [Recovered/Resolved]
